FAERS Safety Report 25187934 (Version 1)
Quarter: 2025Q2

REPORT INFORMATION
  Report Type: Report from Study
  Country: US (occurrence: US)
  Receive Date: 20250411
  Receipt Date: 20250411
  Transmission Date: 20250717
  Serious: Yes (Other)
  Sender: ALEXION PHARMACEUTICALS
  Company Number: US-AstraZeneca-CH-00842822A

PATIENT
  Weight: 82.55 kg

DRUGS (10)
  1. ACALABRUTINIB [Suspect]
     Active Substance: ACALABRUTINIB
     Indication: Chronic lymphocytic leukaemia (in remission)
     Dosage: 100 MILLIGRAM, BID
  2. ACYCLOVIR [Concomitant]
     Active Substance: ACYCLOVIR
     Route: 065
  3. ADVIL [Concomitant]
     Active Substance: IBUPROFEN
     Route: 065
  4. ALBUTEROL [Concomitant]
     Active Substance: ALBUTEROL
     Route: 065
  5. ALLOPURINOL [Concomitant]
     Active Substance: ALLOPURINOL
     Route: 065
  6. BENZONATATE [Concomitant]
     Active Substance: BENZONATATE
     Route: 065
  7. BRUKINSA [Concomitant]
     Active Substance: ZANUBRUTINIB
     Route: 065
  8. CIPRO [Concomitant]
     Active Substance: CIPROFLOXACIN HYDROCHLORIDE
     Route: 065
  9. DOXYCYCLINE [Concomitant]
     Active Substance: DOXYCYCLINE
     Route: 065
  10. NORCO [Concomitant]
     Active Substance: ACETAMINOPHEN\HYDROCODONE BITARTRATE
     Route: 065

REACTIONS (2)
  - Immunosuppression [Recovered/Resolved]
  - Full blood count decreased [Recovered/Resolved]
